FAERS Safety Report 8244692-8 (Version None)
Quarter: 2012Q1

REPORT INFORMATION
  Report Type: 
  Country: None (occurrence: None)
  Receive Date: 20120329
  Receipt Date: 20120131
  Transmission Date: 20120608
  Serious: No
  Sender: FDA-Public Use
  Company Number: US-MYLANLABS-2012S1002407

PATIENT
  Age: 69 Year
  Sex: Male

DRUGS (1)
  1. FENTANYL-100 [Suspect]
     Indication: HERPES ZOSTER
     Dosage: CHANGED Q72H
     Route: 062
     Dates: start: 20120101, end: 20120129

REACTIONS (2)
  - DRUG WITHDRAWAL SYNDROME [None]
  - FEELING JITTERY [None]
